FAERS Safety Report 4334548-5 (Version None)
Quarter: 2004Q2

REPORT INFORMATION
  Report Type: 
  Country: None (occurrence: None)
  Receive Date: 20040407
  Receipt Date: 20040324
  Transmission Date: 20050107
  Serious: Yes (Hospitalization)
  Sender: FDA-Public Use
  Company Number: JP-GLAXOSMITHKLINE-B0328290A

PATIENT
  Age: 69 Year
  Sex: Female

DRUGS (3)
  1. ZANTAC [Suspect]
     Indication: PREMEDICATION
     Dosage: 50MG PER DAY
     Route: 042
     Dates: start: 20040310, end: 20040310
  2. ORGADRONE [Concomitant]
     Indication: PREMEDICATION
     Route: 042
     Dates: start: 20040310
  3. SEROTONE [Concomitant]
     Indication: PREMEDICATION
     Route: 042
     Dates: start: 20040310

REACTIONS (1)
  - ANAPHYLACTIC SHOCK [None]
